FAERS Safety Report 14134575 (Version 2)
Quarter: 2018Q2

REPORT INFORMATION
  Report Type: Spontaneous
  Country: IT (occurrence: IT)
  Receive Date: 20171027
  Receipt Date: 20180427
  Transmission Date: 20180711
  Serious: Yes (Hospitalization)
  Sender: FDA-Public Use
  Company Number: PHHY2017IT156233

PATIENT
  Age: 41 Year
  Sex: Male
  Weight: 68 kg

DRUGS (1)
  1. ALLOPURINOL. [Suspect]
     Active Substance: ALLOPURINOL
     Indication: GOUT
     Route: 048
     Dates: start: 20170913, end: 20171007

REACTIONS (6)
  - Oropharyngeal pain [Unknown]
  - Rash [Unknown]
  - Lymphadenopathy [Unknown]
  - Pyrexia [Unknown]
  - Rash maculo-papular [Unknown]
  - Pruritus [Unknown]

NARRATIVE: CASE EVENT DATE: 20171007
